FAERS Safety Report 15589928 (Version 1)
Quarter: 2018Q4

REPORT INFORMATION
  Report Type: Spontaneous
  Country: US (occurrence: US)
  Receive Date: 20181106
  Receipt Date: 20181106
  Transmission Date: 20190205
  Serious: Yes (Other)
  Sender: FDA-Public Use
  Company Number: US-009507513-1811USA001504

PATIENT
  Age: 75 Year
  Sex: Male

DRUGS (2)
  1. KEYTRUDA [Suspect]
     Active Substance: PEMBROLIZUMAB
     Indication: MELANOMA RECURRENT
     Dosage: 25 TOTAL DOSES
     Dates: start: 2015
  2. KEYTRUDA [Suspect]
     Active Substance: PEMBROLIZUMAB
     Indication: MALIGNANT MELANOMA STAGE IV

REACTIONS (5)
  - Immune-mediated adverse reaction [Unknown]
  - Spinal compression fracture [Unknown]
  - Pelvic fracture [Unknown]
  - Rib fracture [Unknown]
  - Osteoporotic fracture [Unknown]
